FAERS Safety Report 15975599 (Version 1)
Quarter: 2019Q1

REPORT INFORMATION
  Report Type: Spontaneous
  Country: CA (occurrence: CA)
  Receive Date: 20190218
  Receipt Date: 20190218
  Transmission Date: 20190418
  Serious: Yes (Other)
  Sender: FDA-Public Use
  Company Number: CA-BAUSCH-BL-2019-004403

PATIENT
  Age: 44 Year
  Sex: Male

DRUGS (2)
  1. HYDROCORTISONE. [Suspect]
     Active Substance: HYDROCORTISONE
     Indication: HAEMORRHOIDS
     Route: 065
  2. PROCTOSEDYL [Suspect]
     Active Substance: DIBUCAINE HYDROCHLORIDE\HYDROCORTISONE
     Indication: HAEMORRHOIDS
     Dosage: HYDROCORTISONE 5 MG, CINCHOCAINE 5 MG, ESCULIN 10 MG, FRAMYCETIN 10 MG IN 1G CREAM
     Route: 061

REACTIONS (1)
  - Eczema [Recovering/Resolving]
